FAERS Safety Report 4307692-6 (Version None)
Quarter: 2004Q1

REPORT INFORMATION
  Report Type: 
  Country: None (occurrence: None)
  Receive Date: 20040226
  Receipt Date: 20030411
  Transmission Date: 20041129
  Serious: Yes (Hospitalization)
  Sender: FDA-Public Use
  Company Number: 170687

PATIENT
  Age: 38 Year
  Sex: Female

DRUGS (7)
  1. AVONEX [Suspect]
     Indication: MULTIPLE SCLEROSIS
     Dosage: 30 MCG QW IM
     Route: 030
     Dates: start: 20020501
  2. SOMA [Concomitant]
  3. LORET [Concomitant]
  4. REMERON [Concomitant]
  5. ADVAIR DISKUS 100/50 [Concomitant]
  6. PHENYTEX [Concomitant]
  7. COMBIVENT [Concomitant]

REACTIONS (6)
  - ASTHENIA [None]
  - DYSPHAGIA [None]
  - EATING DISORDER [None]
  - FATIGUE [None]
  - NAUSEA [None]
  - PAIN [None]
